FAERS Safety Report 20141276 (Version 3)
Quarter: 2022Q1

REPORT INFORMATION
  Report Type: Spontaneous
  Country: PT (occurrence: PT)
  Receive Date: 20211202
  Receipt Date: 20220202
  Transmission Date: 20220424
  Serious: Yes (Hospitalization)
  Sender: FDA-Public Use
  Company Number: PT-LEO Pharma-339573

PATIENT
  Age: 51 Year
  Sex: Male

DRUGS (5)
  1. TEMOZOLOMIDE [Suspect]
     Active Substance: TEMOZOLOMIDE
     Indication: Oligodendroglioma
     Dosage: DOSAGE : 225 MG/DAY FOR 5 DAYS, IN CYCLES OF 28/28 DAYS
  2. INNOHEP [Suspect]
     Active Substance: TINZAPARIN SODIUM
     Indication: Embolism venous
     Dosage: 10000 INTERNATIONAL UNIT, (10000 U/ 0.5), QD
     Dates: start: 20180102
  3. PHENYTOIN SODIUM [Concomitant]
     Active Substance: PHENYTOIN SODIUM
     Indication: Oligodendroglioma
     Dosage: 100 MILLIGRAM, QD
  4. LEVETIRACETAM [Concomitant]
     Active Substance: LEVETIRACETAM
     Indication: Oligodendroglioma
     Dosage: 100 MILLIGRAM, QD
  5. PREDNISOLONE [Concomitant]
     Active Substance: PREDNISOLONE
     Indication: Oligodendroglioma
     Dosage: 10 MILLIGRAM, QD

REACTIONS (1)
  - Priapism [Recovered/Resolved with Sequelae]
